FAERS Safety Report 5425081-8 (Version None)
Quarter: 2007Q3

REPORT INFORMATION
  Report Type: 
  Country: None (occurrence: None)
  Receive Date: 20070824
  Receipt Date: 20070821
  Transmission Date: 20080115
  Serious: Yes (Hospitalization)
  Sender: FDA-Public Use
  Company Number: JP-ASTRAZENECA-2007AP05306

PATIENT
  Age: 71 Year
  Sex: Female

DRUGS (3)
  1. IRESSA [Suspect]
     Indication: NON-SMALL CELL LUNG CANCER
     Route: 048
     Dates: start: 20070721
  2. PREDNISOLONE [Concomitant]
     Route: 048
     Dates: start: 20070701
  3. ARIMIDEX [Concomitant]
     Route: 048
     Dates: start: 20050101

REACTIONS (1)
  - MUSCULAR WEAKNESS [None]
